FAERS Safety Report 4334075-5 (Version None)
Quarter: 2004Q2

REPORT INFORMATION
  Report Type: 
  Country: None (occurrence: None)
  Receive Date: 20040402
  Receipt Date: 20040322
  Transmission Date: 20050107
  Serious: Yes (Hospitalization, Disabling)
  Sender: FDA-Public Use
  Company Number: 2003125175

PATIENT
  Sex: Male

DRUGS (1)
  1. SORTIS (ATORVASTATIN) [Suspect]
     Indication: ILL-DEFINED DISORDER
     Dosage: ORAL
     Route: 048

REACTIONS (8)
  - APHASIA [None]
  - ARTHRODESIS [None]
  - BLOOD CREATINE PHOSPHOKINASE INCREASED [None]
  - IMPAIRED WORK ABILITY [None]
  - MUSCLE DISORDER [None]
  - PAIN [None]
  - SPINAL CORD COMPRESSION [None]
  - TREMOR [None]
